FAERS Safety Report 17617861 (Version 3)
Quarter: 2020Q2

REPORT INFORMATION
  Report Type: Spontaneous
  Country: US (occurrence: US)
  Receive Date: 20200402
  Receipt Date: 20200508
  Transmission Date: 20200713
  Serious: Yes (Hospitalization)
  Sender: FDA-Public Use
  Company Number: US-PARI RESPIRATORY EQUIPMENT, INC.-2020PAR00024

PATIENT
  Age: 39 Year
  Sex: Male
  Weight: 61.22 kg

DRUGS (19)
  1. CETIRIZINE [Concomitant]
     Active Substance: CETIRIZINE HYDROCHLORIDE
     Dosage: 10 MG (1 TAB), 1X/DAY
     Route: 048
  2. CAYSTON [Concomitant]
     Active Substance: AZTREONAM
     Dosage: 75 MG VIA ALTERA NEBULIZER, 3X/DAY FOR 28 DAYS ON AND 28 DAYS OFF
  3. NASONEX [Concomitant]
     Active Substance: MOMETASONE FUROATE
  4. IPRATROPIUM [Concomitant]
     Active Substance: IPRATROPIUM
     Dosage: THE CONTENTS OF 1 VIAL IN NEBULIZER, 4X/DAY
  5. SPIRIVA RESPIMAT [Concomitant]
     Active Substance: TIOTROPIUM BROMIDE
     Dosage: 2 PUFFS, 1X/DAY
     Route: 048
  6. PULMOZYME [Concomitant]
     Active Substance: DORNASE ALFA
     Dosage: INHALE 1 VIAL (2.5 ML) VIA NEBULIZER, 1X/DAY
  7. TRIKAFTA [Concomitant]
     Active Substance: ELEXACAFTOR\IVACAFTOR\TEZACAFTOR
     Dosage: 2 ORANGE TABLETS, 1X/DAY IN THE MORNING WITH FAT CONTAINING FOOD
  8. ATROVENT [Concomitant]
     Active Substance: IPRATROPIUM BROMIDE
  9. PREDNISONE. [Concomitant]
     Active Substance: PREDNISONE
     Dosage: 10 MG (1 TABLET), 1X/DAY
     Route: 048
  10. PULMOSAL [Concomitant]
     Active Substance: SODIUM CHLORIDE
     Dosage: 4 ML, 2X/DAY
  11. TRIKAFTA [Concomitant]
     Active Substance: ELEXACAFTOR\IVACAFTOR\TEZACAFTOR
     Dosage: 1 BLUE TABLET, 1X/DAY IN THE PM WITH FAT CONTAINING FOOD
  12. IBUPROFEN. [Concomitant]
     Active Substance: IBUPROFEN
     Dosage: 400 MG (1 TAB), EVERY 6 HOURS AS NEEDED
     Route: 048
  13. FLUTICASONE. [Concomitant]
     Active Substance: FLUTICASONE
     Dosage: 2 SPRAYS IN EACH NOSTRIL, 1X/DAY
     Route: 045
  14. ONE DAILY MULTIVITAMIN [Concomitant]
  15. CLARITIN [Concomitant]
     Active Substance: LORATADINE
  16. INCRUSE ELLIPTA [Concomitant]
     Active Substance: UMECLIDINIUM BROMIDE
     Dosage: 1 PUFF, 1X/DAY (DOSES SHOULD BE TAKEN AT LEAST 24 HOURS APART)
  17. KITABIS PAK [Suspect]
     Active Substance: TOBRAMYCIN
     Indication: CYSTIC FIBROSIS
     Dosage: 300 MG (5 ML), 2X/DAY ALTERNATE 28 DAYS ON AND 28 DAYS OFF
  18. KITABIS PAK [Suspect]
     Active Substance: TOBRAMYCIN
     Dosage: 300 MG (5 ML), 2X/DAY ALTERNATE 28 DAYS ON AND 28 DAYS OFF
  19. ALBUTEROL. [Concomitant]
     Active Substance: ALBUTEROL
     Dosage: THE CONTENTS OF 1 VIAL VIA NEBULIZER, UP TO 4X/DAY (EVERY 6 HOURS) AS NEEDED

REACTIONS (2)
  - Influenza [Recovering/Resolving]
  - Respiratory failure [Recovering/Resolving]

NARRATIVE: CASE EVENT DATE: 20200302
